FAERS Safety Report 7608446-5 (Version None)
Quarter: 2011Q3

REPORT INFORMATION
  Report Type: 
  Country: None (occurrence: None)
  Receive Date: 20110714
  Receipt Date: 20110705
  Transmission Date: 20111222
  Serious: Yes (Other)
  Sender: FDA-Public Use
  Company Number: TR-ELI_LILLY_AND_COMPANY-TR201102000919

PATIENT
  Age: 38 Year
  Sex: Male

DRUGS (3)
  1. SERETIDE DISKUS [Concomitant]
     Indication: ASTHMA
     Dosage: 250 UG, UNK
     Route: 055
  2. PROZAC [Suspect]
     Indication: OBSESSIVE-COMPULSIVE DISORDER
     Dosage: 20 MG, 2/D
     Route: 048
  3. ZESPIRA [Concomitant]
     Indication: ASTHMA
     Dosage: 10 MG, DAILY (1/D)
     Route: 048

REACTIONS (1)
  - RESTLESS LEGS SYNDROME [None]
